FAERS Safety Report 4870343-6 (Version None)
Quarter: 2006Q1

REPORT INFORMATION
  Report Type: 
  Country: None (occurrence: None)
  Receive Date: 20060103
  Receipt Date: 20051007
  Transmission Date: 20060701
  Serious: Yes (Hospitalization)
  Sender: FDA-Public Use
  Company Number: DE-BOEHRINGER INGELHEIM PHARMACEUTICALS, INC.-2005-DE-04174DE

PATIENT
  Sex: Female
  Weight: 60 kg

DRUGS (2)
  1. SIFROL [Suspect]
     Indication: RESTLESS LEGS SYNDROME
     Route: 048
     Dates: start: 20051007
  2. DOMINAL [Concomitant]
     Indication: SLEEP DISORDER
     Dates: start: 20051007

REACTIONS (2)
  - ABDOMINAL PAIN [None]
  - UTERINE CANCER [None]
